FAERS Safety Report 10054945 (Version 1)
Quarter: 2014Q2

REPORT INFORMATION
  Report Type: Spontaneous
  Country: CA (occurrence: CA)
  Receive Date: 20140402
  Receipt Date: 20140402
  Transmission Date: 20141212
  Serious: Yes (Other)
  Sender: FDA-Public Use
  Company Number: PHHY2014CA039021

PATIENT
  Age: 57 Year
  Sex: Female

DRUGS (3)
  1. IMATINIB [Suspect]
     Indication: CHRONIC MYELOID LEUKAEMIA
     Dosage: 400 MG, ONCE DAILY
     Dates: start: 2002, end: 201202
  2. IRON SUPPLEMENTS [Concomitant]
  3. VITAMIN B12 [Concomitant]

REACTIONS (2)
  - Gastric antral vascular ectasia [Recovered/Resolved]
  - Gastrointestinal haemorrhage [Recovered/Resolved]
